FAERS Safety Report 5996823-8 (Version None)
Quarter: 2008Q4

REPORT INFORMATION
  Report Type: 
  Country: None (occurrence: None)
  Receive Date: 20081212
  Receipt Date: 20081027
  Transmission Date: 20090506
  Serious: No
  Sender: FDA-Public Use
  Company Number: US-ABBOTT-08P-163-0483977-00

PATIENT
  Sex: Female
  Weight: 50.394 kg

DRUGS (9)
  1. HUMIRA [Suspect]
     Indication: PSORIATIC ARTHROPATHY
     Dates: start: 20081006
  2. AMBIEN SR [Concomitant]
     Indication: INSOMNIA
     Route: 048
  3. BISELECT [Concomitant]
     Indication: HYPERTENSION
     Dosage: FORM: 2.5/6.25 MILLIGRAMS
     Route: 048
     Dates: start: 20040101
  4. ESOMEPRAZOLE MAGNESIUM [Concomitant]
     Indication: IRRITABLE BOWEL SYNDROME
     Route: 048
  5. HYOSCYAMINE SULFATE [Concomitant]
     Indication: IRRITABLE BOWEL SYNDROME
     Route: 048
  6. BELLADONNA [Concomitant]
     Indication: PAIN
     Route: 048
  7. PREDNISONE TAB [Concomitant]
     Indication: ARTHRITIS
     Route: 048
  8. ESTRADIOL [Concomitant]
     Indication: HORMONE REPLACEMENT THERAPY
     Route: 048
  9. CAL-MAX [Concomitant]
     Indication: MINERAL SUPPLEMENTATION
     Route: 048

REACTIONS (4)
  - INJECTION SITE ERYTHEMA [None]
  - INJECTION SITE PRURITUS [None]
  - INJECTION SITE REACTION [None]
  - INJECTION SITE URTICARIA [None]
